FAERS Safety Report 7800376-9 (Version None)
Quarter: 2011Q4

REPORT INFORMATION
  Report Type: 
  Country: None (occurrence: None)
  Receive Date: 20111006
  Receipt Date: 20110926
  Transmission Date: 20120403
  Serious: Yes (Hospitalization, Other)
  Sender: FDA-Public Use
  Company Number: US-BAYER-2010-007087

PATIENT
  Age: 47 Year
  Sex: Female
  Weight: 59 kg

DRUGS (18)
  1. VENTOLIN [Concomitant]
     Indication: MULTIPLE ALLERGIES
     Dosage: UNK UNK, PRN
  2. ALBUTEROL [Concomitant]
     Route: 055
  3. ONE A DAY [B12,D2,B3,B6,RETINOL,B2,NA+ ASCORB,B1 MONONITR] [Concomitant]
     Indication: VITAMIN SUPPLEMENTATION
  4. IBUPROFEN [Concomitant]
     Indication: HEADACHE
     Dosage: UNK UNK, PRN
  5. VITAMIN A [Concomitant]
     Indication: VITAMIN SUPPLEMENTATION
  6. FLUTICASONE PROPIONATE/SALMETEROL [Concomitant]
  7. ADVAIR DISKUS 100/50 [Concomitant]
     Indication: ASTHMA
     Dosage: UNK UNK, BID
  8. IMITREX [Concomitant]
     Indication: MIGRAINE
     Dosage: UNK UNK, BID
  9. LOVAZA [Concomitant]
     Indication: VITAMIN SUPPLEMENTATION
  10. OCEAN [Concomitant]
  11. ZYRTEC [Concomitant]
     Indication: MULTIPLE ALLERGIES
  12. NAPROXEN (ALEVE) [Concomitant]
     Indication: HEADACHE
     Dosage: UNK UNK, PRN
  13. EXCEDRIN (MIGRAINE) [Concomitant]
     Indication: HEADACHE
     Dosage: UNK UNK, PRN
  14. CETIRIZINE HCL [Concomitant]
     Dosage: 10 MG, UNK
  15. YASMIN [Suspect]
     Indication: ACNE
     Dosage: UNK
     Dates: start: 20070301, end: 20081101
  16. VERAMYST [Concomitant]
     Indication: ASTHMA
  17. CALCIUM MAGNESIUM [Concomitant]
     Indication: VITAMIN SUPPLEMENTATION
     Dosage: UNK UNK, QD
  18. POTASSIUM GLUCONATE TAB [Concomitant]
     Indication: SUPPLEMENTATION THERAPY
     Dosage: UNK UNK, Q2MON

REACTIONS (3)
  - PAIN [None]
  - PULMONARY EMBOLISM [None]
  - INJURY [None]
